FAERS Safety Report 10619070 (Version 1)
Quarter: 2014Q4

REPORT INFORMATION
  Report Type: Spontaneous
  Country: US (occurrence: None)
  Receive Date: 20141126
  Receipt Date: 20141126
  Transmission Date: 20150529
  Serious: Yes (Other)
  Sender: FDA-Public Use
  Company Number: SP08556

PATIENT
  Age: 47 Year
  Sex: Female
  Weight: 70.76 kg

DRUGS (8)
  1. LINZESS [Concomitant]
     Active Substance: LINACLOTIDE
  2. OXYCODONE [Concomitant]
     Active Substance: OXYCODONE
  3. AMBIEN [Concomitant]
     Active Substance: ZOLPIDEM TARTRATE
  4. PERCOCET [Concomitant]
     Active Substance: ACETAMINOPHEN\OXYCODONE HYDROCHLORIDE
  5. FIORICET [Concomitant]
     Active Substance: ACETAMINOPHEN\BUTALBITAL\CAFFEINE
  6. XANAX [Concomitant]
     Active Substance: ALPRAZOLAM
  7. OXYCONTIN [Concomitant]
     Active Substance: OXYCODONE HYDROCHLORIDE
  8. RELISTOR [Suspect]
     Active Substance: METHYLNALTREXONE BROMIDE
     Indication: CONSTIPATION
     Dosage: (12 MG, ONCE), SUBCUTANEOUS
     Route: 058
     Dates: start: 20141111, end: 20141111

REACTIONS (6)
  - Hyperhidrosis [None]
  - Blood pressure systolic decreased [None]
  - Abdominal pain [None]
  - Drug dose omission [None]
  - Retching [None]
  - Drug withdrawal syndrome [None]

NARRATIVE: CASE EVENT DATE: 20141111
